FAERS Safety Report 7351478-5 (Version None)
Quarter: 2011Q1

REPORT INFORMATION
  Report Type: 
  Country: None (occurrence: None)
  Receive Date: 20110314
  Receipt Date: 20110307
  Transmission Date: 20110831
  Serious: Yes (Hospitalization)
  Sender: FDA-Public Use
  Company Number: US-GILEAD-2011-0035708

PATIENT
  Sex: Female

DRUGS (1)
  1. LETAIRIS [Suspect]
     Indication: PULMONARY HYPERTENSION
     Route: 048
     Dates: start: 20071119

REACTIONS (5)
  - ANGINA PECTORIS [None]
  - RENAL FAILURE [None]
  - PULMONARY HYPERTENSION [None]
  - ELECTROCARDIOGRAM CHANGE [None]
  - CARDIAC FAILURE CONGESTIVE [None]
